FAERS Safety Report 18106055 (Version 3)
Quarter: 2020Q3

REPORT INFORMATION
  Report Type: Report from Study
  Country: US (occurrence: US)
  Receive Date: 20200803
  Receipt Date: 20200923
  Transmission Date: 20201103
  Serious: Yes (Other)
  Sender: FDA-Public Use
  Company Number: NVSC2020US214414

PATIENT
  Age: 84 Year
  Sex: Female
  Weight: 156 kg

DRUGS (1)
  1. KISQALI [Suspect]
     Active Substance: RIBOCICLIB
     Indication: BREAST CANCER
     Dosage: 600 MG, UNKNOWN
     Route: 048
     Dates: start: 20200622, end: 20200730

REACTIONS (4)
  - Drug intolerance [Unknown]
  - Neutrophil count decreased [Unknown]
  - Asthenia [Recovered/Resolved with Sequelae]
  - Drug ineffective [Unknown]

NARRATIVE: CASE EVENT DATE: 20200622
